FAERS Safety Report 5647432-1 (Version None)
Quarter: 2008Q1

REPORT INFORMATION
  Report Type: 
  Country: None (occurrence: None)
  Receive Date: 20080303
  Receipt Date: 20080225
  Transmission Date: 20080703
  Serious: Yes (Other)
  Sender: FDA-Public Use
  Company Number: FR-SANOFI-SYNTHELABO-A02200800717

PATIENT
  Sex: Male

DRUGS (1)
  1. PLAVIX [Suspect]
     Indication: ARTERITIS OBLITERANS
     Dosage: UNK
     Route: 048

REACTIONS (1)
  - PAIN IN EXTREMITY [None]
